FAERS Safety Report 7554928-4 (Version None)
Quarter: 2011Q2

REPORT INFORMATION
  Report Type: 
  Country: None (occurrence: None)
  Receive Date: 20110617
  Receipt Date: 20110609
  Transmission Date: 20111010
  Serious: Yes (Hospitalization)
  Sender: FDA-Public Use
  Company Number: US-MILLENNIUM PHARMACEUTICALS, INC.-2011-02483

PATIENT
  Sex: Female

DRUGS (1)
  1. VELCADE [Suspect]
     Indication: AMYLOIDOSIS
     Dosage: UNK
     Route: 065
     Dates: start: 20100801

REACTIONS (4)
  - DRUG ADMINISTRATION ERROR [None]
  - ABDOMINAL DISCOMFORT [None]
  - HOSPITALISATION [None]
  - DIARRHOEA [None]
